FAERS Safety Report 5729504-6 (Version None)
Quarter: 2008Q2

REPORT INFORMATION
  Report Type: 
  Country: None (occurrence: None)
  Receive Date: 20080506
  Receipt Date: 20080425
  Transmission Date: 20081010
  Serious: Yes (Other)
  Sender: FDA-Public Use
  Company Number: US-ELI_LILLY_AND_COMPANY-US200804006733

PATIENT
  Sex: Female
  Weight: 65.76 kg

DRUGS (6)
  1. BYETTA [Suspect]
     Indication: TYPE 2 DIABETES MELLITUS
     Dosage: 5 UG, 2/D
     Route: 058
     Dates: start: 20060401, end: 20060501
  2. BYETTA [Suspect]
     Dosage: 10 UG, 2/D
     Route: 058
     Dates: start: 20060501, end: 20060501
  3. BYETTA [Suspect]
     Dosage: 5 UG, 2/D
     Route: 058
     Dates: start: 20060601, end: 20061201
  4. BYETTA [Suspect]
     Dosage: 10 UG, 2/D
     Route: 058
     Dates: start: 20061201
  5. METFORMIN HCL [Concomitant]
     Indication: TYPE 2 DIABETES MELLITUS
     Dosage: UNK, UNKNOWN
  6. VYTORIN [Concomitant]
     Indication: BLOOD CHOLESTEROL
     Dosage: UNK, UNKNOWN

REACTIONS (6)
  - ABDOMINAL PAIN [None]
  - HEPATIC ENZYME INCREASED [None]
  - NAUSEA [None]
  - PANCREATIC CYST [None]
  - WEIGHT DECREASED [None]
  - WHITE BLOOD CELL COUNT INCREASED [None]
